FAERS Safety Report 8543288-8 (Version None)
Quarter: 2012Q3

REPORT INFORMATION
  Report Type: 
  Country: None (occurrence: None)
  Receive Date: 20120727
  Receipt Date: 20120716
  Transmission Date: 20120928
  Serious: Yes (Hospitalization)
  Sender: FDA-Public Use
  Company Number: US-ABBOTT-12P-163-0955377-00

PATIENT
  Sex: Male

DRUGS (1)
  1. HUMIRA [Suspect]
     Indication: PSORIATIC ARTHROPATHY
     Route: 058
     Dates: start: 20110401

REACTIONS (4)
  - MUSCULOSKELETAL STIFFNESS [None]
  - IATROGENIC INJURY [None]
  - LARGE INTESTINE PERFORATION [None]
  - PSORIASIS [None]
